FAERS Safety Report 8349372-6 (Version None)
Quarter: 2012Q2

REPORT INFORMATION
  Report Type: 
  Country: None (occurrence: None)
  Receive Date: 20120508
  Receipt Date: 20120425
  Transmission Date: 20120825
  Serious: Yes (Hospitalization)
  Sender: FDA-Public Use
  Company Number: AUR-APL-2012-01965

PATIENT
  Age: 65 Year
  Sex: Female

DRUGS (11)
  1. RAMIPRIL [Suspect]
     Indication: DIABETES MELLITUS
     Dosage: 10 MG (10 MG, 1 IN 1 D), ORAL; 5 MG (5 MG, ONCE DAILY IN MORNING), ORAL
     Route: 048
  2. RAMIPRIL [Suspect]
     Indication: HYPERTENSION
     Dosage: 10 MG (10 MG, 1 IN 1 D), ORAL; 5 MG (5 MG, ONCE DAILY IN MORNING), ORAL
     Route: 048
  3. GAVISCON [Concomitant]
  4. NUTRITIONAL SUPPLEMENT (NUTRITION 6) [Concomitant]
  5. GLICLAZIDE [Concomitant]
  6. PRILOSEC [Concomitant]
  7. AMLODIPINE BESYLATE [Suspect]
     Indication: HYPERTENSION
     Dosage: 5 MG (5 MG, 1 IN 1 D), ORAL
     Route: 048
  8. ASPIRIN [Concomitant]
  9. VENTOLIN [Concomitant]
  10. ATORVASTATIN CALCIUM [Concomitant]
  11. CALCIUM AND COLECALCIFEROL (CALCIUM D3) [Concomitant]

REACTIONS (3)
  - FALL [None]
  - HYPOTENSION [None]
  - JOINT SWELLING [None]
